FAERS Safety Report 8430345-X (Version None)
Quarter: 2012Q2

REPORT INFORMATION
  Report Type: 
  Country: None (occurrence: None)
  Receive Date: 20120606
  Receipt Date: 20120606
  Transmission Date: 20120825
  Serious: No
  Sender: FDA-Public Use
  Company Number: None

PATIENT
  Sex: Female

DRUGS (1)
  1. SOMATULINE DEPOT [Suspect]
     Dosage: 60 MG/0.2ML SC  EVERY 28 DAYS
     Route: 058

REACTIONS (1)
  - HEART RATE INCREASED [None]
